FAERS Safety Report 4272826-9 (Version None)
Quarter: 2004Q1

REPORT INFORMATION
  Report Type: 
  Country: None (occurrence: None)
  Receive Date: 20040114
  Receipt Date: 20040102
  Transmission Date: 20041129
  Serious: Yes (Hospitalization)
  Sender: FDA-Public Use
  Company Number: 2003118196

PATIENT
  Age: 23 Year
  Sex: Female

DRUGS (3)
  1. GEODON [Suspect]
     Indication: PSYCHOTIC DISORDER
     Dosage: 10 MG (BID), INTRAMUSCULAR
     Route: 030
     Dates: start: 20031104
  2. GEODON [Suspect]
     Indication: SCHIZOPHRENIA
     Dosage: 10 MG (BID), INTRAMUSCULAR
     Route: 030
     Dates: start: 20031104
  3. LORAZEPAM [Concomitant]

REACTIONS (2)
  - DRUG INEFFECTIVE [None]
  - REFUSAL OF TREATMENT BY PATIENT [None]
